FAERS Safety Report 4801886-9 (Version None)
Quarter: 2005Q4

REPORT INFORMATION
  Report Type: 
  Country: None (occurrence: None)
  Receive Date: 20051018
  Receipt Date: 20050728
  Transmission Date: 20060501
  Serious: Yes (Other)
  Sender: FDA-Public Use
  Company Number: PHNR2005AU01175

PATIENT
  Sex: Male

DRUGS (15)
  1. NEORAL [Suspect]
     Indication: RENAL TRANSPLANT
     Dosage: GRADUAL REDUCTION IN DOSE
     Dates: start: 20000101, end: 20030101
  2. NEORAL [Suspect]
     Dosage: 75 MG, BID
     Dates: start: 20030101, end: 20050616
  3. NEORAL [Suspect]
     Dosage: 50 MG, BID
     Dates: start: 20050616
  4. NEORAL [Suspect]
     Dosage: 75 MG, BID
  5. NEORAL [Suspect]
     Dosage: DOSE NOT SPECIFIED
     Dates: end: 20000101
  6. CERTICAN [Suspect]
     Indication: DRUG TOXICITY
     Dosage: 0.75 MG AM, 0.25 MG PM
     Dates: start: 20050616
  7. ENALAPRIL [Suspect]
     Dosage: 20 MG DAILY
  8. ALENDRONATE SODIUM [Concomitant]
     Dosage: 70 MG WEEKLY
  9. AZATHIOPRINE [Concomitant]
     Dosage: 75 MG DAILY
  10. PREDNISOLONE [Suspect]
     Dosage: 7.5 MG DAILY
  11. DILTIAZEM [Concomitant]
     Dosage: 240 MG DAILY
  12. PARACETAMOL [Concomitant]
     Dosage: UNK, PRN
  13. SILDENAFIL [Concomitant]
     Dosage: 20 - 50 MG PRN
  14. ATORVASTATIN [Concomitant]
     Dosage: 20 MG DAILY
  15. ATORVASTATIN [Concomitant]
     Dosage: 30 MG DAILY

REACTIONS (18)
  - ANGIONEUROTIC OEDEMA [None]
  - BLOOD CHOLESTEROL INCREASED [None]
  - BLOOD CREATININE INCREASED [None]
  - COMPLICATIONS OF TRANSPLANTED KIDNEY [None]
  - CYTOMEGALOVIRUS INFECTION [None]
  - DRUG TOXICITY [None]
  - GINGIVAL HYPERTROPHY [None]
  - HYPERTENSION [None]
  - JOINT INJECTION [None]
  - KIDNEY TRANSPLANT REJECTION [None]
  - NEPHROPATHY TOXIC [None]
  - NEURILEMMOMA [None]
  - OEDEMA PERIPHERAL [None]
  - OSTEOPOROSIS [None]
  - PROTEINURIA [None]
  - SPONDYLOLISTHESIS ACQUIRED [None]
  - SURGERY [None]
  - TENDON RUPTURE [None]
